FAERS Safety Report 23206144 (Version 2)
Quarter: 2023Q4

REPORT INFORMATION
  Report Type: Spontaneous
  Country: NO (occurrence: NO)
  Receive Date: 20231120
  Receipt Date: 20231130
  Transmission Date: 20240109
  Serious: Yes (Other)
  Sender: FDA-Public Use
  Company Number: NO-MYLANLABS-2023M1123183

PATIENT
  Sex: Female

DRUGS (11)
  1. NEURONTIN [Suspect]
     Active Substance: GABAPENTIN
     Indication: Neuralgia
     Dosage: UNK
     Route: 065
  2. NEURONTIN [Suspect]
     Active Substance: GABAPENTIN
     Indication: Sciatica
     Dosage: UNK
     Route: 065
  3. NEURONTIN [Suspect]
     Active Substance: GABAPENTIN
     Indication: Neuralgia
     Dosage: UNK
     Route: 065
  4. NEURONTIN [Suspect]
     Active Substance: GABAPENTIN
     Indication: Sciatica
  5. LYRICA [Suspect]
     Active Substance: PREGABALIN
     Indication: Neuralgia
     Dosage: UNK
     Route: 065
  6. LYRICA [Suspect]
     Active Substance: PREGABALIN
     Indication: Sciatica
  7. QUETIAPINE [Concomitant]
     Active Substance: QUETIAPINE
     Indication: Sleep apnoea syndrome
     Dosage: UNK
     Route: 065
  8. SODIUM PICOSULFATE [Concomitant]
     Active Substance: SODIUM PICOSULFATE
     Dosage: UNK
     Route: 065
  9. MOVICOL [Concomitant]
     Active Substance: POLYETHYLENE GLYCOL 3350\POTASSIUM CHLORIDE\SODIUM BICARBONATE\SODIUM CHLORIDE
     Dosage: UNK
     Route: 065
  10. ACETAMINOPHEN [Concomitant]
     Active Substance: ACETAMINOPHEN
     Dosage: UNK
     Route: 065
  11. LITHIUM [Concomitant]
     Active Substance: LITHIUM
     Dosage: UNK
     Route: 065

REACTIONS (14)
  - Cataract [Unknown]
  - Pyelonephritis [Unknown]
  - Spinal operation [Unknown]
  - Anal fissure [Unknown]
  - Eye irritation [Unknown]
  - Eye pain [Unknown]
  - Dry eye [Unknown]
  - Haemoglobin increased [Unknown]
  - Sleep disorder [Unknown]
  - Haemorrhoids [Unknown]
  - Head discomfort [Unknown]
  - Tinnitus [Not Recovered/Not Resolved]
  - Constipation [Unknown]
  - Urinary tract infection [Unknown]
